FAERS Safety Report 5326689-0 (Version None)
Quarter: 2007Q2

REPORT INFORMATION
  Report Type: 
  Country: None (occurrence: None)
  Receive Date: 20070516
  Receipt Date: 20070504
  Transmission Date: 20071010
  Serious: Yes (Hospitalization, Other)
  Sender: FDA-Public Use
  Company Number: AU-PFIZER INC-2006140552

PATIENT
  Sex: Male
  Weight: 70 kg

DRUGS (7)
  1. CELEBREX [Suspect]
     Indication: PAIN
     Route: 048
  2. PERINDOPRIL [Suspect]
     Indication: HYPERTENSION
     Route: 048
     Dates: start: 20060914, end: 20061011
  3. FISH OIL [Concomitant]
  4. VITAMIN CAP [Concomitant]
  5. LEFLUNOMIDE [Concomitant]
     Dosage: DAILY DOSE:20MG
     Route: 048
     Dates: start: 20010101
  6. COD-LIVER OIL [Concomitant]
  7. ASCORBIC ACID [Concomitant]

REACTIONS (15)
  - ABDOMINAL PAIN [None]
  - ANAPHYLACTIC REACTION [None]
  - ASTHENIA [None]
  - CHILLS [None]
  - DIZZINESS [None]
  - EAR DISCOMFORT [None]
  - FEELING HOT [None]
  - FLUSHING [None]
  - HEART RATE INCREASED [None]
  - HYPERHIDROSIS [None]
  - NAUSEA [None]
  - OEDEMA PERIPHERAL [None]
  - PROCTALGIA [None]
  - RASH ERYTHEMATOUS [None]
  - SWELLING FACE [None]
